FAERS Safety Report 7324410-8 (Version None)
Quarter: 2011Q1

REPORT INFORMATION
  Report Type: 
  Country: None (occurrence: None)
  Receive Date: 20110301
  Receipt Date: 20110223
  Transmission Date: 20110831
  Serious: No
  Sender: FDA-Public Use
  Company Number: US-PFIZER INC-2011005931

PATIENT
  Age: 75 Year
  Sex: Male

DRUGS (6)
  1. ADVIL LIQUI-GELS [Suspect]
     Indication: SINUS DISORDER
  2. ADVIL LIQUI-GELS [Suspect]
     Indication: WHEEZING
  3. ADVIL LIQUI-GELS [Suspect]
     Indication: NASOPHARYNGITIS
     Dosage: ONE LIQUI-GEL EVERY FOUR TO SIX HOURS
     Route: 048
     Dates: start: 20110107
  4. ADVIL LIQUI-GELS [Suspect]
     Indication: SNEEZING
     Dosage: UNK
  5. ADVIL LIQUI-GELS [Suspect]
     Indication: COUGH
  6. ADVIL LIQUI-GELS [Suspect]
     Indication: PAIN

REACTIONS (1)
  - DRUG EFFECT DECREASED [None]
